FAERS Safety Report 8307715-3 (Version None)
Quarter: 2012Q2

REPORT INFORMATION
  Report Type: 
  Country: None (occurrence: None)
  Receive Date: 20120424
  Receipt Date: 20120417
  Transmission Date: 20120825
  Serious: Yes (Hospitalization)
  Sender: FDA-Public Use
  Company Number: PHEH2012US008202

PATIENT
  Sex: Male

DRUGS (2)
  1. DIOVAN [Suspect]
     Dosage: UNK UKN, UNK
  2. POTASSIUM SUPPLEMENTS [Concomitant]
     Dosage: UNK UKN, UNK

REACTIONS (4)
  - LIBIDO DECREASED [None]
  - ERECTILE DYSFUNCTION [None]
  - BLOOD POTASSIUM DECREASED [None]
  - CHEST PAIN [None]
